FAERS Safety Report 14170108 (Version 1)
Quarter: 2017Q4

REPORT INFORMATION
  Report Type: Spontaneous
  Country: US (occurrence: US)
  Receive Date: 20171108
  Receipt Date: 20171108
  Transmission Date: 20180321
  Serious: No
  Sender: FDA-Public Use
  Company Number: US-MISSION PHARMACAL COMPANY-2033536

PATIENT
  Age: 46 Year
  Sex: Female

DRUGS (1)
  1. THIOLA [Suspect]
     Active Substance: TIOPRONIN
     Indication: NEPHROLITHIASIS
     Route: 065
     Dates: start: 20160714

REACTIONS (13)
  - Nausea [Unknown]
  - Incorrect dose administered [Unknown]
  - Pain [Unknown]
  - Blister [Recovering/Resolving]
  - Drug dose omission [Unknown]
  - Dry skin [Unknown]
  - Contusion [Unknown]
  - Blister [Recovered/Resolved]
  - Malaise [Unknown]
  - Abdominal pain upper [Unknown]
  - Hyperaesthesia [Unknown]
  - Oropharyngeal pain [Unknown]
  - Drug ineffective [Unknown]
